FAERS Safety Report 5331990-0 (Version None)
Quarter: 2007Q2

REPORT INFORMATION
  Report Type: 
  Country: None (occurrence: None)
  Receive Date: 20070518
  Receipt Date: 20070212
  Transmission Date: 20071010
  Serious: Yes (Other)
  Sender: FDA-Public Use
  Company Number: 2006SP008926

PATIENT

DRUGS (23)
  1. POSACONAZOLE [Suspect]
     Indication: DRUG USE FOR UNKNOWN INDICATION
     Dosage: 200 MG; Q6H; PO
     Route: 048
     Dates: start: 20061214, end: 20061222
  2. VORICONAZOLE [Suspect]
     Indication: DRUG USE FOR UNKNOWN INDICATION
     Dosage: SEE IMAGE
     Route: 048
     Dates: start: 20060830, end: 20061204
  3. VORICONAZOLE [Suspect]
     Indication: DRUG USE FOR UNKNOWN INDICATION
     Dosage: SEE IMAGE
     Route: 048
     Dates: start: 20061204, end: 20061205
  4. MICAFUNGIN [Suspect]
     Dosage: 100 MG; QD; IV
     Route: 042
     Dates: start: 20061205, end: 20061214
  5. AMBISOME [Suspect]
     Dosage: SEE IMAGE
     Route: 042
     Dates: start: 20061205, end: 20061214
  6. AMBISOME [Suspect]
     Dosage: SEE IMAGE
     Route: 042
     Dates: start: 20061223, end: 20061225
  7. CASPOFUNGIN [Suspect]
     Dosage: 50 MG; QD; IV
     Route: 042
     Dates: start: 20061228, end: 20070102
  8. VORICONAZOLE [Concomitant]
  9. BUDESONIDE [Concomitant]
  10. URSODIOL [Concomitant]
  11. LANSOPRAZOLE [Concomitant]
  12. PREDNISONE TAB [Concomitant]
  13. VANCOMYCIN [Concomitant]
  14. AMLODIPINE [Concomitant]
  15. MOXIFOXACIN [Concomitant]
  16. GANCICLOVIR [Concomitant]
  17. IMIPENEM [Concomitant]
  18. BACTRIM [Concomitant]
  19. IMMUNE GLOBULIN INTRAVENOUS (HUMAN) [Concomitant]
  20. CIPROFLOXACIN [Concomitant]
  21. METRONIDAZOLE [Concomitant]
  22. ACYCLOVIR [Concomitant]
  23. URSODIOL [Concomitant]

REACTIONS (1)
  - ANAEMIA HAEMOLYTIC AUTOIMMUNE [None]
